FAERS Safety Report 19419577 (Version 1)
Quarter: 2021Q2

REPORT INFORMATION
  Report Type: Other
  Country: CA (occurrence: CA)
  Receive Date: 20210615
  Receipt Date: 20210615
  Transmission Date: 20210717
  Serious: Yes (Other)
  Sender: FDA-Public Use
  Company Number: CA-ROCHE-2825696

PATIENT
  Sex: Male

DRUGS (11)
  1. ENSTILAR [Concomitant]
     Active Substance: BETAMETHASONE DIPROPIONATE\CALCIPOTRIENE HYDRATE
     Route: 061
  2. BASAGLAR [Concomitant]
     Active Substance: INSULIN GLARGINE
     Dosage: DRUG DOSE FIRST ADMINISTERED IS 100 IU INTERNATIONAL UNIT(S)
     Route: 058
  3. INVOKANA [Concomitant]
     Active Substance: CANAGLIFLOZIN
     Dosage: DRUG DOSE FIRST ADMINISTERED IS 150 MG MILLIGRAM(S)
     Route: 048
  4. ESBRIET [Suspect]
     Active Substance: PIRFENIDONE
     Dosage: DRUG DOSE FIRST ADMINISTERED IS 534 MG MILLIGRAM(S)
     Route: 048
     Dates: start: 20201027, end: 20201102
  5. ESBRIET [Suspect]
     Active Substance: PIRFENIDONE
     Dosage: DRUG DOSE FIRST ADMINISTERED IS 534 MG MILLIGRAM(S)
     Route: 048
     Dates: start: 20210413, end: 202104
  6. ESBRIET [Suspect]
     Active Substance: PIRFENIDONE
     Dosage: DRUG DOSE FIRST ADMINISTERED IS 801 MG MILLIGRAM(S)
     Route: 048
     Dates: start: 20201103, end: 20210409
  7. ESBRIET [Suspect]
     Active Substance: PIRFENIDONE
     Dosage: TREATMENT ON HOLD
     Route: 048
     Dates: start: 20210503, end: 202105
  8. BETAMETHASONE. [Concomitant]
     Active Substance: BETAMETHASONE
     Route: 061
  9. CLOPIDOGREL [Concomitant]
     Active Substance: CLOPIDOGREL BISULFATE
     Dosage: DRUG DOSE FIRST ADMINISTERED IS 75 MG MILLIGRAM(S)
     Route: 048
  10. VOLTAREN [Concomitant]
     Active Substance: DICLOFENAC SODIUM
     Dosage: DRUG DOSE FIRST ADMINISTERED IS 1.15 % PERCENT
     Route: 061
  11. ESBRIET [Suspect]
     Active Substance: PIRFENIDONE
     Indication: IDIOPATHIC PULMONARY FIBROSIS
     Dosage: DRUG DOSE FIRST ADMINISTERED IS 267 MG MILLIGRAM(S)
     Route: 048
     Dates: start: 20201020, end: 20201026

REACTIONS (2)
  - Hepatotoxicity [Unknown]
  - Hepatic enzyme increased [Unknown]
